FAERS Safety Report 15691054 (Version 1)
Quarter: 2018Q4

REPORT INFORMATION
  Report Type: Spontaneous
  Country: US (occurrence: US)
  Receive Date: 20181205
  Receipt Date: 20181205
  Transmission Date: 20190205
  Serious: No
  Sender: FDA-Public Use
  Company Number: US-BAYER-2018-222822

PATIENT
  Age: 89 Year
  Sex: Female
  Weight: 81 kg

DRUGS (3)
  1. VERAPAMIL [Concomitant]
     Active Substance: VERAPAMIL HYDROCHLORIDE
  2. HYDROCHLOROTHIAZIDE. [Concomitant]
     Active Substance: HYDROCHLOROTHIAZIDE
  3. MIRALAX [Suspect]
     Active Substance: POLYETHYLENE GLYCOL 3350
     Indication: GASTROINTESTINAL DISORDER
     Dosage: UNK I FOLLOWED THE BOTTLE INSTRUCTIONS AND FILLED TO THE WHITE LINE AND TOOK IT EVERY DAY
     Route: 048

REACTIONS (1)
  - Gastrointestinal motility disorder [Unknown]
